FAERS Safety Report 23073869 (Version 4)
Quarter: 2024Q1

REPORT INFORMATION
  Report Type: Spontaneous
  Country: US (occurrence: US)
  Receive Date: 20231017
  Receipt Date: 20240102
  Transmission Date: 20240410
  Serious: No
  Sender: FDA-Public Use
  Company Number: US-PFIZER INC-202300311053

PATIENT
  Age: 13 Year
  Sex: Male
  Weight: 33.11 kg

DRUGS (1)
  1. GENOTROPIN [Suspect]
     Active Substance: SOMATROPIN
     Indication: Growth hormone deficiency
     Dosage: 1.3 MG, DAILY, [1.3MG DAILY INJECTION BUTTOCKS, THIGH, ABDOMEN]
     Dates: start: 202307

REACTIONS (4)
  - Device leakage [Unknown]
  - Device information output issue [Recovered/Resolved]
  - Drug dose omission by device [Not Recovered/Not Resolved]
  - Device breakage [Unknown]

NARRATIVE: CASE EVENT DATE: 20230924
